FAERS Safety Report 4866657-6 (Version None)
Quarter: 2005Q4

REPORT INFORMATION
  Report Type: 
  Country: None (occurrence: None)
  Receive Date: 20051221
  Receipt Date: 20051207
  Transmission Date: 20060501
  Serious: Yes (Hospitalization)
  Sender: FDA-Public Use
  Company Number: DSA_27534_2005

PATIENT
  Age: 74 Year
  Sex: Male

DRUGS (13)
  1. DILTIAZEM HYDROCHLORIDE [Suspect]
     Dosage: 300 MG Q DAY PO
     Route: 048
     Dates: start: 20050104, end: 20050113
  2. CORVASAL [Concomitant]
  3. TAREG [Concomitant]
  4. TAHOR [Concomitant]
  5. LASILIX [Concomitant]
  6. KARDEGIC [Concomitant]
  7. PERMIXON [Concomitant]
  8. PREVISCAN [Concomitant]
  9. FORLAX [Concomitant]
  10. XATRAL [Concomitant]
  11. ACETAMINOPHEN [Concomitant]
  12. DIFFU K [Concomitant]
  13. INSULINE NPH [Concomitant]

REACTIONS (5)
  - ATRIAL FIBRILLATION [None]
  - CARDIAC FAILURE [None]
  - CARDIAC FIBRILLATION [None]
  - CONDITION AGGRAVATED [None]
  - MYOCARDIAL INFARCTION [None]
